FAERS Safety Report 6424988-2 (Version None)
Quarter: 2009Q4

REPORT INFORMATION
  Report Type: 
  Country: None (occurrence: None)
  Receive Date: 20091102
  Receipt Date: 20091102
  Transmission Date: 20100525
  Serious: Yes (Hospitalization)
  Sender: FDA-Public Use
  Company Number: None

PATIENT
  Age: 87 Year
  Sex: Male
  Weight: 68 kg

DRUGS (1)
  1. IMATINIB [Suspect]
     Indication: CARDIAC FAILURE CONGESTIVE
     Dosage: 400 MG EVERY DAY PO
     Route: 048
     Dates: start: 20090409, end: 20090619

REACTIONS (2)
  - CARDIAC FAILURE CONGESTIVE [None]
  - PALPITATIONS [None]
